FAERS Safety Report 17296531 (Version 2)
Quarter: 2020Q1

REPORT INFORMATION
  Report Type: Spontaneous
  Country: CH (occurrence: CH)
  Receive Date: 20200122
  Receipt Date: 20200122
  Transmission Date: 20200409
  Serious: Yes (Death, Hospitalization)
  Sender: FDA-Public Use
  Company Number: CH-TEVA-2020-CH-1171193

PATIENT
  Age: 71 Year
  Sex: Male

DRUGS (4)
  1. IBRUTINIB [Suspect]
     Active Substance: IBRUTINIB
     Indication: CHRONIC LYMPHOCYTIC LEUKAEMIA
     Dosage: AS OF THE FIRST DAY OF THE TREATMENT (DAY -25)
     Route: 065
  2. OBINUTUZUMAB. [Concomitant]
     Active Substance: OBINUTUZUMAB
     Indication: CHRONIC LYMPHOCYTIC LEUKAEMIA
     Dosage: 3 TIMES IN WEEKLY INTERVALS THE FIRST CYCLE (DAYS -25, -18 AND -11),
     Route: 065
  3. VENETOCLAX. [Suspect]
     Active Substance: VENETOCLAX
     Indication: CHRONIC LYMPHOCYTIC LEUKAEMIA
     Dosage: DAY -3 (THREE WEEKS AFTER OBINUTUZUMAB AND IBRUTINIB INITIATION)
     Route: 065
  4. DEXAMETHASONE. [Suspect]
     Active Substance: DEXAMETHASONE
     Indication: CHRONIC LYMPHOCYTIC LEUKAEMIA
     Dosage: SINGLE DOSES OF 20 MG WEEKLY FOR 3 TIMES (DAYS -25, -18 AND -11) (WITH OBINUTUZUMAB)
     Route: 065

REACTIONS (7)
  - Encephalitis [Fatal]
  - Sepsis [Unknown]
  - Bronchopulmonary aspergillosis [Fatal]
  - Mucormycosis [Fatal]
  - Fungal sepsis [Fatal]
  - Pleural effusion [Unknown]
  - Pneumonia [Unknown]
